FAERS Safety Report 10597598 (Version 1)
Quarter: 2014Q4

REPORT INFORMATION
  Report Type: Spontaneous
  Country: US (occurrence: None)
  Receive Date: 20141119
  Receipt Date: 20141119
  Transmission Date: 20150529
  Serious: Yes (Hospitalization)
  Sender: FDA-Public Use
  Company Number: 2014110020

PATIENT
  Sex: Female

DRUGS (1)
  1. FELBATOL [Suspect]
     Active Substance: FELBAMATE

REACTIONS (2)
  - Unable to afford prescribed medication [None]
  - Therapy cessation [None]
